FAERS Safety Report 10210580 (Version 1)
Quarter: 2014Q2

REPORT INFORMATION
  Report Type: Spontaneous
  Country: US (occurrence: None)
  Receive Date: 20140529
  Receipt Date: 20140529
  Transmission Date: 20141212
  Serious: Yes (Other)
  Sender: FDA-Public Use
  Company Number: None

PATIENT
  Age: 27 Year
  Sex: Female

DRUGS (2)
  1. MAKENA [Suspect]
     Indication: PREMATURE LABOUR
     Route: 030
     Dates: start: 20140314
  2. MAKENA [Suspect]
     Indication: PROPHYLAXIS
     Route: 030
     Dates: start: 20140314

REACTIONS (2)
  - Skin mass [None]
  - Injection site reaction [None]
